FAERS Safety Report 9734133 (Version 1)
Quarter: 2013Q4

REPORT INFORMATION
  Report Type: Other
  Country: JP (occurrence: JP)
  Receive Date: 20131205
  Receipt Date: 20131205
  Transmission Date: 20140711
  Serious: Yes (Other)
  Sender: FDA-Public Use
  Company Number: JP-BRISTOL-MYERS SQUIBB COMPANY-19877984

PATIENT
  Sex: 0

DRUGS (1)
  1. ABILIFY [Suspect]
     Indication: SCHIZOPHRENIA
     Route: 048

REACTIONS (4)
  - Psychotic disorder [Unknown]
  - Tardive dyskinesia [Unknown]
  - Schizophrenia [Unknown]
  - Drug resistance [Unknown]
